FAERS Safety Report 8180858-3 (Version None)
Quarter: 2012Q1

REPORT INFORMATION
  Report Type: 
  Country: None (occurrence: None)
  Receive Date: 20120301
  Receipt Date: 20120301
  Transmission Date: 20120608
  Serious: Yes (Other)
  Sender: FDA-Public Use
  Company Number: None

PATIENT
  Sex: Female
  Weight: 79.3795 kg

DRUGS (1)
  1. SUPREP BOWEL PREP KIT [Suspect]
     Indication: COLONOSCOPY
     Dosage: 2-6 OZ 177ML BOTTLES 1 BOTTLE 6 HRS APART  1 DOSE
     Dates: start: 20120214

REACTIONS (6)
  - DYSPNOEA [None]
  - CHILLS [None]
  - PYREXIA [None]
  - HEADACHE [None]
  - VOMITING [None]
  - NAUSEA [None]
